FAERS Safety Report 5402890-2 (Version None)
Quarter: 2007Q3

REPORT INFORMATION
  Report Type: 
  Country: None (occurrence: None)
  Receive Date: 20070801
  Receipt Date: 20070719
  Transmission Date: 20080115
  Serious: Yes (Hospitalization)
  Sender: FDA-Public Use
  Company Number: GB-ROCHE-500265

PATIENT
  Age: 34 Year
  Sex: Female
  Weight: 95.3 kg

DRUGS (1)
  1. XENICAL [Suspect]
     Indication: OBESITY
     Route: 048
     Dates: start: 20070113

REACTIONS (1)
  - FALLOPIAN TUBE OBSTRUCTION [None]
